FAERS Safety Report 24084644 (Version 5)
Quarter: 2025Q1

REPORT INFORMATION
  Report Type: Spontaneous
  Country: US (occurrence: US)
  Receive Date: 20240712
  Receipt Date: 20250324
  Transmission Date: 20250408
  Serious: No
  Sender: PFIZER
  Company Number: US-PFIZER INC-PV202400071512

PATIENT
  Age: 51 Year
  Sex: Female

DRUGS (4)
  1. TUKYSA [Suspect]
     Active Substance: TUCATINIB
     Indication: HER2 positive breast cancer
  2. TUKYSA [Suspect]
     Active Substance: TUCATINIB
     Dosage: 250 MG (150 MG ONE TABLET, 50 MG TWO TABLETS), 2X/DAY
  3. TUKYSA [Suspect]
     Active Substance: TUCATINIB
     Dosage: TAKE TWO TABLETS BY MOUTH AM AND PM DAILY
     Route: 048
  4. TUKYSA [Suspect]
     Active Substance: TUCATINIB
     Dosage: TAKE 300MG BY MOUTH TWICE DAILY
     Route: 048

REACTIONS (2)
  - Off label use [Unknown]
  - Urinary tract infection [Unknown]
